FAERS Safety Report 6944878-6 (Version None)
Quarter: 2010Q3

REPORT INFORMATION
  Report Type: 
  Country: None (occurrence: None)
  Receive Date: 20100827
  Receipt Date: 20100818
  Transmission Date: 20110219
  Serious: Yes (Hospitalization, Other)
  Sender: FDA-Public Use
  Company Number: JO-BAYER-201036693GPV

PATIENT
  Age: 7 Year
  Sex: Male

DRUGS (13)
  1. FLUDARABINE [Suspect]
     Indication: STEM CELL TRANSPLANT
     Dosage: DAY -6 TO -2
  2. FLUDARABINE [Suspect]
     Dosage: DAY -6 TO -3
  3. ALEMTUZUMAB [Suspect]
     Indication: T-CELL DEPLETION
     Dosage: ON DAY ZERO (SECOND STEM CELL TRANSPLANTATION)
  4. ANTI-THYMOCYTE GLOBULIN NOS [Suspect]
     Indication: STEM CELL TRANSPLANT
     Dosage: DAY - 6 TO - 2
  5. ANTI-THYMOCYTE GLOBULIN NOS [Suspect]
     Dosage: DAY - 6 TO - 2
  6. CYTARABINE [Suspect]
     Indication: STEM CELL TRANSPLANT
     Dosage: DAY -6 TO -3
  7. CYTARABINE [Suspect]
     Dosage: DAY -6 TO -5
  8. BUSULFAN [Suspect]
     Indication: STEM CELL TRANSPLANT
     Dosage: DAY -8 TO -7
  9. GRANULOCYTE COLONY STIMULATING FACTOR [Concomitant]
     Indication: STEM CELL TRANSPLANT
     Dosage: ON DAY +5
  10. CYCLOSPORINE [Concomitant]
     Indication: PROPHYLAXIS AGAINST GRAFT VERSUS HOST DISEASE
     Dosage: START AT DAY - 3
  11. CYCLOSPORINE [Concomitant]
     Dosage: START AT DAY - 3
  12. MYCOPHENOLATE MOFETIL [Concomitant]
     Indication: PROPHYLAXIS AGAINST GRAFT VERSUS HOST DISEASE
     Dosage: FROM DAY ZERO
  13. RED BLOOD CELLS [Concomitant]

REACTIONS (13)
  - ACUTE GRAFT VERSUS HOST DISEASE IN INTESTINE [None]
  - ACUTE GRAFT VERSUS HOST DISEASE IN SKIN [None]
  - CYSTITIS HAEMORRHAGIC [None]
  - CYTOMEGALOVIRUS INFECTION [None]
  - HYDROCEPHALUS [None]
  - MENINGITIS TUBERCULOUS [None]
  - PANCYTOPENIA [None]
  - PNEUMATOSIS INTESTINALIS [None]
  - PNEUMOCYSTIS JIROVECI PNEUMONIA [None]
  - PNEUMONIA CYTOMEGALOVIRAL [None]
  - SEPTIC SHOCK [None]
  - STATUS EPILEPTICUS [None]
  - TRANSPLANT FAILURE [None]
